FAERS Safety Report 14430528 (Version 1)
Quarter: 2018Q1

REPORT INFORMATION
  Report Type: Spontaneous
  Country: US (occurrence: US)
  Receive Date: 20180124
  Receipt Date: 20180124
  Transmission Date: 20180509
  Serious: Yes (Death, Hospitalization)
  Sender: FDA-Public Use
  Company Number: US-ROCHE-2019068

PATIENT
  Age: 8 Year
  Sex: Male

DRUGS (2)
  1. TISAGENLECLEUCEL. [Suspect]
     Active Substance: TISAGENLECLEUCEL
     Indication: PRODUCT USED FOR UNKNOWN INDICATION
     Route: 041
  2. ACTEMRA [Suspect]
     Active Substance: TOCILIZUMAB
     Indication: CYTOKINE RELEASE SYNDROME
     Route: 042

REACTIONS (6)
  - Lymphopenia [Unknown]
  - Parainfluenzae virus infection [Unknown]
  - Left ventricular dysfunction [Not Recovered/Not Resolved]
  - Soft tissue infection [Unknown]
  - Acute lymphocytic leukaemia [Fatal]
  - Upper respiratory tract infection [Unknown]
